FAERS Safety Report 8670313 (Version 3)
Quarter: 2013Q4

REPORT INFORMATION
  Report Type: Spontaneous
  Country: JP (occurrence: JP)
  Receive Date: 20120703
  Receipt Date: 20131031
  Transmission Date: 20140711
  Serious: Yes (Death, Other)
  Sender: FDA-Public Use
  Company Number: JP-009507513-2012SP019329

PATIENT
  Age: 70 Year
  Sex: Male

DRUGS (6)
  1. REFLEX [Suspect]
     Indication: DEPRESSION
     Dosage: 15 MG, QD
     Route: 048
     Dates: start: 20090907, end: 20090914
  2. REFLEX [Suspect]
     Dosage: 7.5 MG, QD
     Route: 048
     Dates: start: 20100903, end: 20100918
  3. BROTIZOLAM [Concomitant]
     Indication: INSOMNIA
     Dosage: 3 TABLETS A DAY, UPDATE (26JUN2012)
     Route: 048
     Dates: start: 20090907
  4. BROTIZOLAM [Concomitant]
     Indication: INSOMNIA
     Dosage: 1.5 TABLETS A DAY, UPDATE (26JUN2012)
     Route: 048
     Dates: start: 20090902
  5. APRAZ [Concomitant]
     Indication: ANXIETY
     Dosage: UPDATE (26JUN2012)
     Route: 048
     Dates: start: 20090902
  6. DULOXETINE HYDROCHLORIDE [Concomitant]
     Dosage: 1 TABLET A DAY
     Route: 048

REACTIONS (2)
  - Pneumonia [Fatal]
  - Delirium [Recovered/Resolved]
